FAERS Safety Report 23788181 (Version 1)
Quarter: 2024Q2

REPORT INFORMATION
  Report Type: Spontaneous
  Country: ZA (occurrence: None)
  Receive Date: 20240426
  Receipt Date: 20240426
  Transmission Date: 20240716
  Serious: Yes (Other)
  Sender: FDA-Public Use
  Company Number: 2024A097322

PATIENT
  Age: 83 Year
  Sex: Male

DRUGS (5)
  1. DAPAGLIFLOZIN PROPANEDIOL [Suspect]
     Active Substance: DAPAGLIFLOZIN PROPANEDIOL
     Indication: Diabetes mellitus
     Dosage: 10.0MG UNKNOWN
     Route: 048
  2. DOXAZOSIN MESYLATE [Concomitant]
     Active Substance: DOXAZOSIN MESYLATE
     Indication: Prostatic disorder
     Route: 048
  3. PREGABALIN [Concomitant]
     Active Substance: PREGABALIN
     Indication: Epilepsy
     Route: 048
  4. GABAPENTIN [Concomitant]
     Active Substance: GABAPENTIN
     Indication: Epilepsy
     Route: 048
  5. SPIRACTIN [Concomitant]
     Indication: Hypertension
     Route: 048

REACTIONS (1)
  - Dyspepsia [Unknown]
